FAERS Safety Report 20570127 (Version 1)
Quarter: 2022Q1

REPORT INFORMATION
  Report Type: Spontaneous
  Country: US (occurrence: US)
  Receive Date: 20220309
  Receipt Date: 20220309
  Transmission Date: 20220423
  Serious: Yes (Other)
  Sender: FDA-Public Use
  Company Number: US-SA-SAC20220307001542

PATIENT
  Age: 60 Year
  Sex: Male

DRUGS (1)
  1. ZANTAC [Suspect]
     Active Substance: RANITIDINE HYDROCHLORIDE
     Indication: Dyspepsia
     Dosage: DOSE/UNIT: UNKNOWN AT THIS TIME FREQUENCY: OCCASIONAL
     Dates: start: 201201, end: 201702

REACTIONS (2)
  - Renal cancer stage IV [Unknown]
  - Lymphoma [Unknown]

NARRATIVE: CASE EVENT DATE: 20170201
